FAERS Safety Report 9440625 (Version 1)
Quarter: 2013Q3

REPORT INFORMATION
  Report Type: Spontaneous
  Country: US (occurrence: None)
  Receive Date: 20130801
  Receipt Date: 20130801
  Transmission Date: 20140515
  Serious: Yes (Life-Threatening, Other)
  Sender: FDA-Public Use
  Company Number: LMI-2013-00297

PATIENT
  Age: 48 Year
  Sex: Female

DRUGS (14)
  1. CARDIOLITE [Suspect]
     Indication: CARDIAC STRESS TEST
     Route: 042
     Dates: start: 20130701, end: 20130701
  2. METFORMIN ER(METFORMIN HYDROCHLORIDE) [Concomitant]
  3. LEVOTHYROXINE(LEVOTHYROXINE) [Concomitant]
  4. TOPROL XL(METOPROLOL SUCCINATE) [Concomitant]
  5. HYZAAR(HYDROCHLOROTHIAZIDE, LOSARTAN POTASSIUM) [Concomitant]
  6. NAPROXEN(NAPROXEN) [Concomitant]
  7. FLUOXETINE(FLUOXETINE) [Concomitant]
  8. SINGULAIR [Concomitant]
  9. ZYRTEC(CETIRIZINE HYDROCHLORIDE) [Concomitant]
  10. ADVAIR INHALER(FLUTICASONE PROPIONATE, SALMETEROL XINAFOATE) [Concomitant]
  11. SPIRIVA(TIOTROPIUM BROMIDE) [Concomitant]
  12. FLONASE NASAL SPRAY(FLUTICASONE PROPIONATE) [Concomitant]
  13. MULTIVITAMIN(ERGOCALCIFEROL, ASCORBIC ACID, PYRIDOXINE HYDROCHLORIDE, THIAMINE HYDROCHLORIDE, RETINOL, RIBOFLAVIN, NICOTINAMIDE, CALCIUM PANTOTHENATE) [Concomitant]
  14. OMEGA 3(TOCOPHEROL, FISH OIL) [Concomitant]

REACTIONS (12)
  - Feeling hot [None]
  - Loss of consciousness [None]
  - Convulsion [None]
  - Nausea [None]
  - Vomiting [None]
  - Abdominal pain [None]
  - Retching [None]
  - Cardiac arrest [None]
  - Presyncope [None]
  - Electrocardiogram ST segment depression [None]
  - Infusion site extravasation [None]
  - Loss of consciousness [None]
